FAERS Safety Report 7887891 (Version 5)
Quarter: 2015Q4

REPORT INFORMATION
  Report Type: Spontaneous
  Country: US (occurrence: US)
  Receive Date: 20110406
  Receipt Date: 20151023
  Transmission Date: 20160305
  Serious: Yes (Hospitalization, Other)
  Sender: FDA-Public Use
  Company Number: US-BAYER-2011-028620

PATIENT
  Age: 28 Year
  Sex: Female

DRUGS (2)
  1. YASMIN [Suspect]
     Active Substance: DROSPIRENONE\ETHINYL ESTRADIOL
     Dosage: UNK
     Dates: start: 20090210, end: 20091023
  2. YAZ [Suspect]
     Active Substance: DROSPIRENONE\ETHINYL ESTRADIOL
     Dosage: UNK
     Dates: start: 20090210, end: 20091023

REACTIONS (9)
  - Deep vein thrombosis [None]
  - Anhedonia [None]
  - Anxiety [None]
  - General physical health deterioration [None]
  - Cholecystectomy [None]
  - Pain [None]
  - Pulmonary embolism [None]
  - Injury [None]
  - Emotional distress [None]

NARRATIVE: CASE EVENT DATE: 200910
